FAERS Safety Report 4358721-5 (Version None)
Quarter: 2004Q2

REPORT INFORMATION
  Report Type: 
  Country: None (occurrence: None)
  Receive Date: 20040517
  Receipt Date: 20040211
  Transmission Date: 20050107
  Serious: Yes (Death, Hospitalization)
  Sender: FDA-Public Use
  Company Number: PHFR2004GB00954

PATIENT
  Age: 54 Year
  Sex: Male

DRUGS (4)
  1. CLOZARIL [Suspect]
     Indication: SCHIZOPHRENIA
     Dosage: 700MG/DAY
     Route: 048
     Dates: start: 19910115
  2. CLOMIPRAMINE [Concomitant]
     Indication: SCHIZOPHRENIA
     Dosage: 25MG/DAY
     Route: 048
  3. DIAZEPAM [Concomitant]
     Indication: SCHIZOPHRENIA
     Dosage: 2 MG, BID
     Route: 048
  4. TEMAZEPAM [Concomitant]
     Dosage: 10MG/DAY
     Route: 048

REACTIONS (5)
  - CARDIAC ARREST [None]
  - ESSENTIAL HYPERTENSION [None]
  - HYPERTENSIVE HEART DISEASE [None]
  - INJURY [None]
  - JOINT DISLOCATION [None]
